FAERS Safety Report 4653361-2 (Version None)
Quarter: 2005Q2

REPORT INFORMATION
  Report Type: 
  Country: None (occurrence: None)
  Receive Date: 20050503
  Receipt Date: 20050420
  Transmission Date: 20051028
  Serious: Yes (Hospitalization)
  Sender: FDA-Public Use
  Company Number: 2003166639FR

PATIENT
  Age: 75 Year
  Sex: Female

DRUGS (9)
  1. XANAX [Suspect]
     Indication: ILL-DEFINED DISORDER
     Dosage: 0.25 MG (0.25 MG, 1 IN 1 D), ORAL
     Route: 048
     Dates: end: 20030501
  2. AMLODIPINE [Suspect]
     Indication: HYPERTENSION
     Dosage: 5 MG (DAILY), ORAL
     Route: 048
  3. ZOPICLONE (ZOPICLONE) [Suspect]
     Indication: ILL-DEFINED DISORDER
     Dosage: 7.5 MG (DAILY), ORAL
     Route: 048
     Dates: end: 20030501
  4. OMEPRAZOLE [Suspect]
     Indication: ILL-DEFINED DISORDER
     Dosage: 20 MG (DAILY), ORAL
     Route: 048
     Dates: end: 20030501
  5. ACETAMINOPHEN [Suspect]
     Indication: ILL-DEFINED DISORDER
     Dosage: 1000 MG (500 MG, 2 IN 1 D), ORAL
     Route: 048
     Dates: end: 20030501
  6. CITALOPRAM HYDROBROMIDE [Suspect]
     Indication: DEPRESSION
     Dosage: 20 MG (DAILY), ORAL
     Route: 048
     Dates: end: 20030501
  7. NITROGLYCERIN [Concomitant]
  8. HYDROCORTISONE [Concomitant]
  9. MACROGOL (MACROGOL) [Concomitant]

REACTIONS (2)
  - HEPATITIS CHOLESTATIC [None]
  - HYPERTENSION [None]
